FAERS Safety Report 6594666-8 (Version None)
Quarter: 2010Q1

REPORT INFORMATION
  Report Type: 
  Country: None (occurrence: None)
  Receive Date: 20100222
  Receipt Date: 20100212
  Transmission Date: 20100710
  Serious: Yes (Other)
  Sender: FDA-Public Use
  Company Number: US-AMGEN-QUU392401

PATIENT
  Sex: Female

DRUGS (5)
  1. ARANESP [Suspect]
     Indication: ANAEMIA OF MALIGNANT DISEASE
     Dates: start: 20090811
  2. GEMCITABINE [Concomitant]
     Dates: end: 20091229
  3. NAVELBINE [Concomitant]
     Dates: end: 20091229
  4. PEMETREXED DISODIUM [Concomitant]
     Dates: start: 20091229
  5. UNSPECIFIED MEDICATION [Concomitant]

REACTIONS (2)
  - MALIGNANT NEOPLASM PROGRESSION [None]
  - TRANSFUSION [None]
